FAERS Safety Report 7244587-2 (Version None)
Quarter: 2011Q1

REPORT INFORMATION
  Report Type: 
  Country: None (occurrence: None)
  Receive Date: 20110125
  Receipt Date: 20110113
  Transmission Date: 20110831
  Serious: Yes (Disabling, Other)
  Sender: FDA-Public Use
  Company Number: DE-PFIZER INC-2011016368

PATIENT
  Age: 58 Year
  Sex: Female

DRUGS (3)
  1. IBUPROFEN [Suspect]
     Indication: PYREXIA
     Dosage: 600 MG, 3X/DAY
     Route: 065
     Dates: start: 20101216
  2. LEVOFLOXACIN [Suspect]
     Indication: URINARY TRACT INFECTION
     Dosage: 500 MG, 1X/DAY
     Route: 048
     Dates: start: 20101218, end: 20101221
  3. LEVOFLOXACIN [Suspect]
     Indication: PYELONEPHRITIS

REACTIONS (6)
  - BALANCE DISORDER [None]
  - DIZZINESS [None]
  - TINNITUS [None]
  - DEAFNESS NEUROSENSORY [None]
  - DISTURBANCE IN ATTENTION [None]
  - APHASIA [None]
